FAERS Safety Report 4298426-2 (Version None)
Quarter: 2004Q1

REPORT INFORMATION
  Report Type: 
  Country: None (occurrence: None)
  Receive Date: 20040218
  Receipt Date: 20030715
  Transmission Date: 20041129
  Serious: Yes (Other)
  Sender: FDA-Public Use
  Company Number: US-BRISTOL-MYERS SQUIBB COMPANY-12326971

PATIENT
  Age: 55 Year
  Sex: Male

DRUGS (4)
  1. STADOL [Suspect]
     Indication: ACCIDENT
     Dosage: DOSE VALUE:  8 TO 10 DOSAGE FORM
     Route: 045
     Dates: start: 19810101
  2. LORCET-HD [Suspect]
     Dates: start: 19810101
  3. PERCODAN [Suspect]
     Dates: start: 19810101
  4. DILAUDID [Suspect]
     Dates: start: 19810101

REACTIONS (1)
  - DEPENDENCE [None]
